FAERS Safety Report 22625388 (Version 2)
Quarter: 2024Q2

REPORT INFORMATION
  Report Type: Other
  Country: PH (occurrence: None)
  Receive Date: 20230621
  Receipt Date: 20240510
  Transmission Date: 20240715
  Serious: Yes (Other)
  Sender: FDA-Public Use
  Company Number: PH-ROCHE-3367332

PATIENT
  Sex: Male

DRUGS (1)
  1. TOCILIZUMAB [Suspect]
     Active Substance: TOCILIZUMAB
     Indication: COVID-19
     Dosage: 60-MINUTE 400 MG INTRAVENOUS TOCILIZUMAB INFUSION DILUTED IN 0.9% SODIUM CHLORIDE
     Route: 042

REACTIONS (1)
  - Pancreatitis acute [Recovered/Resolved]
